FAERS Safety Report 16568867 (Version 1)
Quarter: 2019Q3

REPORT INFORMATION
  Report Type: Report from Study
  Country: BE (occurrence: BE)
  Receive Date: 20190713
  Receipt Date: 20190713
  Transmission Date: 20191004
  Serious: Yes (Other)
  Sender: FDA-Public Use
  Company Number: BE-ROCHE-2349450

PATIENT

DRUGS (7)
  1. ASPIRIN [ACETYLSALICYLIC ACID] [Suspect]
     Active Substance: ASPIRIN
     Indication: ACUTE MYOCARDIAL INFARCTION
     Route: 042
  2. ALTEPLASE. [Suspect]
     Active Substance: ALTEPLASE
     Dosage: DURING ONE HOUR
     Route: 041
  3. HEPARIN [Suspect]
     Active Substance: HEPARIN SODIUM
     Indication: ACUTE MYOCARDIAL INFARCTION
     Route: 040
  4. HEPARIN [Suspect]
     Active Substance: HEPARIN SODIUM
     Dosage: 1000 IU/H
     Route: 042
  5. ALTEPLASE. [Suspect]
     Active Substance: ALTEPLASE
     Dosage: DURING THE NEXT TWO HOURS
     Route: 041
  6. ALTEPLASE. [Suspect]
     Active Substance: ALTEPLASE
     Indication: ACUTE MYOCARDIAL INFARCTION
     Route: 040
  7. ASPIRIN [ACETYLSALICYLIC ACID] [Suspect]
     Active Substance: ASPIRIN
     Dosage: 75-125 MG ORALLY EVERY OTHER DAY
     Route: 048

REACTIONS (4)
  - Retroperitoneal haemorrhage [Unknown]
  - Haemorrhagic stroke [Unknown]
  - Gastrointestinal haemorrhage [Unknown]
  - Ischaemic stroke [Unknown]
